FAERS Safety Report 6151360-5 (Version None)
Quarter: 2009Q2

REPORT INFORMATION
  Report Type: 
  Country: None (occurrence: None)
  Receive Date: 20090410
  Receipt Date: 20090406
  Transmission Date: 20091009
  Serious: Yes (Hospitalization)
  Sender: FDA-Public Use
  Company Number: PHHO2006DE04251

PATIENT
  Sex: Male
  Weight: 82 kg

DRUGS (3)
  1. SANDIMMUNE [Suspect]
     Indication: RENAL TRANSPLANT
     Dosage: 400 MG / DAILY
     Route: 048
     Dates: start: 20051213
  2. MYFORTIC [Suspect]
     Indication: RENAL TRANSPLANT
     Dosage: 1440 MG / DAILY
     Route: 048
     Dates: start: 20051213
  3. NO TREATMENT RECEIVED NOMED [Suspect]
     Indication: RENAL TRANSPLANT
     Dosage: NO TREATMENT

REACTIONS (12)
  - COMPLICATIONS OF TRANSPLANT SURGERY [None]
  - COMPLICATIONS OF TRANSPLANTED KIDNEY [None]
  - DEVICE OCCLUSION [None]
  - GRAFT LOSS [None]
  - HYDRONEPHROSIS [None]
  - IMPAIRED HEALING [None]
  - INCISIONAL DRAINAGE [None]
  - LYMPHOCELE [None]
  - NEPHRECTOMY [None]
  - SURGERY [None]
  - URETHRAL STENT INSERTION [None]
  - URINARY TRACT OBSTRUCTION [None]
